FAERS Safety Report 11598596 (Version 1)
Quarter: 2015Q4

REPORT INFORMATION
  Report Type: Spontaneous
  Country: US (occurrence: US)
  Receive Date: 20151006
  Receipt Date: 20151006
  Transmission Date: 20160304
  Serious: No
  Sender: FDA-Public Use
  Company Number: US-BAYER-2015-433518

PATIENT
  Age: 68 Year
  Sex: Male

DRUGS (1)
  1. FINACEA [Suspect]
     Active Substance: AZELAIC ACID
     Indication: ROSACEA
     Dosage: UNK UNK, BID
     Route: 061
     Dates: start: 20150929

REACTIONS (2)
  - Application site pain [None]
  - Skin warm [None]

NARRATIVE: CASE EVENT DATE: 20150929
